FAERS Safety Report 15255358 (Version 2)
Quarter: 2018Q4

REPORT INFORMATION
  Report Type: Spontaneous
  Country: US (occurrence: US)
  Receive Date: 20180808
  Receipt Date: 20181011
  Transmission Date: 20190204
  Serious: Yes (Other)
  Sender: FDA-Public Use
  Company Number: US-LEXICON PHARMACEUTICALS, INC-18-1606-00930

PATIENT
  Sex: Female

DRUGS (11)
  1. CARBOPLATIN. [Concomitant]
     Active Substance: CARBOPLATIN
  2. TELOTRISTAT ETHYL [Suspect]
     Active Substance: TELOTRISTAT ETHYL
     Indication: CARCINOID SYNDROME
     Route: 048
     Dates: start: 20180430
  3. TELOTRISTAT ETHYL [Suspect]
     Active Substance: TELOTRISTAT ETHYL
     Indication: CARCINOID TUMOUR OF THE DUODENUM
  4. BENZONATATE. [Concomitant]
     Active Substance: BENZONATATE
  5. SOMATULINE DEPOT [Concomitant]
     Active Substance: LANREOTIDE ACETATE
  6. HYOSYNE [Concomitant]
     Active Substance: HYOSCYAMINE SULFATE
  7. POTASSIMIN [Concomitant]
  8. LASIX [Concomitant]
     Active Substance: FUROSEMIDE
  9. VALSARTAN. [Concomitant]
     Active Substance: VALSARTAN
  10. COQ10 [Concomitant]
     Active Substance: UBIDECARENONE
  11. CREON [Concomitant]
     Active Substance: PANCRELIPASE AMYLASE\PANCRELIPASE LIPASE\PANCRELIPASE PROTEASE

REACTIONS (3)
  - Abdominal pain [Unknown]
  - Lung neoplasm malignant [Unknown]
  - Constipation [Unknown]

NARRATIVE: CASE EVENT DATE: 2018
